FAERS Safety Report 8174020-8 (Version None)
Quarter: 2012Q1

REPORT INFORMATION
  Report Type: 
  Country: None (occurrence: None)
  Receive Date: 20120229
  Receipt Date: 20120220
  Transmission Date: 20120608
  Serious: Yes (Hospitalization)
  Sender: FDA-Public Use
  Company Number: JP-ROCHE-1013516

PATIENT
  Sex: Male

DRUGS (29)
  1. PREDNISOLONE [Concomitant]
     Route: 048
     Dates: start: 20110601, end: 20110603
  2. PREDNISOLONE [Concomitant]
     Route: 048
     Dates: start: 20110609, end: 20110617
  3. PREDNISOLONE [Concomitant]
     Route: 048
     Dates: start: 20110714, end: 20110804
  4. NEORAL [Concomitant]
     Indication: JUVENILE ARTHRITIS
     Route: 048
     Dates: start: 20110528, end: 20110530
  5. PREDNISOLONE [Concomitant]
     Route: 048
     Dates: start: 20110618, end: 20110624
  6. PREDNISOLONE [Concomitant]
     Route: 048
     Dates: start: 20110625, end: 20110630
  7. ACTEMRA [Suspect]
     Route: 041
     Dates: start: 20110804, end: 20110804
  8. PRAVASTATIN SODIUM [Concomitant]
     Indication: PROPHYLAXIS
     Route: 048
  9. PREDNISOLONE [Concomitant]
     Indication: JUVENILE ARTHRITIS
     Route: 048
     Dates: end: 20110501
  10. PREDNISOLONE [Concomitant]
     Route: 048
     Dates: start: 20110513, end: 20110517
  11. NEORAL [Concomitant]
     Route: 048
     Dates: start: 20110613, end: 20110616
  12. ACTEMRA [Suspect]
     Route: 041
     Dates: start: 20110721, end: 20110721
  13. PREDNISOLONE [Concomitant]
     Route: 048
     Dates: start: 20110604, end: 20110608
  14. PREDNISOLONE [Concomitant]
     Route: 048
     Dates: start: 20110701, end: 20110706
  15. NEORAL [Concomitant]
     Route: 048
     Dates: start: 20110617, end: 20110705
  16. FAMOTIDINE [Concomitant]
     Indication: PROPHYLAXIS
     Route: 048
     Dates: start: 20110518, end: 20111005
  17. SOLU-MEDROL [Concomitant]
     Indication: JUVENILE ARTHRITIS
     Route: 042
     Dates: start: 20110518, end: 20110520
  18. SOLU-MEDROL [Concomitant]
     Route: 042
     Dates: start: 20110525, end: 20110527
  19. ACTEMRA [Suspect]
     Indication: JUVENILE ARTHRITIS
     Route: 041
     Dates: start: 20110707, end: 20110707
  20. ACTEMRA [Suspect]
     Route: 041
     Dates: start: 20110826, end: 20110826
  21. PREDNISOLONE [Concomitant]
     Dosage: 4MG AND 3 ALTERNATE MG
     Route: 048
     Dates: start: 20110502, end: 20110501
  22. PREDNISOLONE [Concomitant]
     Route: 048
     Dates: start: 20110521, end: 20110524
  23. PREDNISOLONE [Concomitant]
     Route: 048
     Dates: start: 20110512, end: 20110512
  24. PREDNISOLONE [Concomitant]
     Route: 048
     Dates: start: 20110707, end: 20110713
  25. PREDNISOLONE [Concomitant]
     Route: 048
     Dates: start: 20110805, end: 20110907
  26. NEORAL [Concomitant]
     Route: 048
     Dates: start: 20110706
  27. PREDNISOLONE [Concomitant]
     Route: 048
     Dates: start: 20110528, end: 20110531
  28. NEORAL [Concomitant]
     Route: 048
     Dates: start: 20110531, end: 20110612
  29. MAGNESIUM OXIDE [Concomitant]
     Indication: CONSTIPATION
     Route: 048
     Dates: start: 20110703, end: 20110805

REACTIONS (2)
  - INFUSION RELATED REACTION [None]
  - NASOPHARYNGITIS [None]
